FAERS Safety Report 10205492 (Version 1)
Quarter: 2014Q2

REPORT INFORMATION
  Report Type: Spontaneous
  Country: TR (occurrence: TR)
  Receive Date: 20140529
  Receipt Date: 20140529
  Transmission Date: 20141212
  Serious: Yes (Life-Threatening)
  Sender: FDA-Public Use
  Company Number: TR-MYLANLABS-2014S1011895

PATIENT
  Age: 57 Year
  Sex: Male

DRUGS (1)
  1. SUNITINIB [Suspect]
     Indication: METASTATIC RENAL CELL CARCINOMA
     Dosage: 25MG DAILY FOR 4 WEEKS OUT OF 6 WEEEKS
     Route: 048
     Dates: start: 201007, end: 201011

REACTIONS (7)
  - Anaemia [Unknown]
  - Face oedema [Unknown]
  - Pigmentation disorder [Unknown]
  - Mucosal inflammation [Unknown]
  - Hypertension [Unknown]
  - Asthenia [Unknown]
  - Fatigue [Unknown]
